FAERS Safety Report 25808162 (Version 1)
Quarter: 2025Q3

REPORT INFORMATION
  Report Type: Spontaneous
  Country: TR (occurrence: TR)
  Receive Date: 20250916
  Receipt Date: 20250916
  Transmission Date: 20251020
  Serious: Yes (Other)
  Sender: GILEAD
  Company Number: TR-GILEAD-2025-0727499

PATIENT
  Age: 46 Year
  Sex: Female

DRUGS (1)
  1. TRODELVY [Suspect]
     Active Substance: SACITUZUMAB GOVITECAN-HZIY
     Indication: Triple negative breast cancer
     Route: 065
     Dates: start: 20241224, end: 20250309

REACTIONS (1)
  - Disease progression [Not Recovered/Not Resolved]
